FAERS Safety Report 23287646 (Version 1)
Quarter: 2023Q4

REPORT INFORMATION
  Report Type: Spontaneous
  Country: AU (occurrence: AU)
  Receive Date: 20231212
  Receipt Date: 20231212
  Transmission Date: 20240110
  Serious: Yes (Other)
  Sender: FDA-Public Use
  Company Number: AU-GRUNENTHAL-2023-304755

PATIENT
  Age: 86 Year
  Sex: Female

DRUGS (4)
  1. NUCYNTA ER [Suspect]
     Active Substance: TAPENTADOL HYDROCHLORIDE
     Indication: Product used for unknown indication
     Dosage: 50 MILLIGRAM, 2/DAY
     Route: 065
  2. TAPENTADOL [Suspect]
     Active Substance: TAPENTADOL
     Indication: Pain
     Dosage: 25 MILLIGRAM, 2/DAY
     Route: 065
  3. TAPENTADOL [Suspect]
     Active Substance: TAPENTADOL
     Dosage: 25 MILLIGRAM, 3/DAY
     Route: 065
  4. PANADOL [Suspect]
     Active Substance: ACETAMINOPHEN
     Indication: Product used for unknown indication
     Dosage: UNK UNK, UNKNOWN
     Route: 065

REACTIONS (4)
  - Coma scale abnormal [Recovered/Resolved]
  - Respiratory depression [Recovered/Resolved]
  - Sedation [Recovered/Resolved]
  - Wrong technique in product usage process [Unknown]
